FAERS Safety Report 5047072-1 (Version None)
Quarter: 2006Q3

REPORT INFORMATION
  Report Type: 
  Country: None (occurrence: None)
  Receive Date: 20060710
  Receipt Date: 20060628
  Transmission Date: 20061208
  Serious: Yes (Hospitalization)
  Sender: FDA-Public Use
  Company Number: FR-BRISTOL-MYERS SQUIBB COMPANY-13428438

PATIENT
  Age: 45 Year
  Sex: Male
  Weight: 70 kg

DRUGS (4)
  1. DAFALGAN [Suspect]
     Route: 048
     Dates: start: 20060101, end: 20060508
  2. KENACORT [Suspect]
     Route: 030
     Dates: start: 20060301
  3. SULFASALAZINE [Suspect]
     Dates: start: 20060306, end: 20060508
  4. BI-PROFENID [Suspect]
     Dates: start: 20060101, end: 20060508

REACTIONS (1)
  - AGRANULOCYTOSIS [None]
